FAERS Safety Report 5870357-3 (Version None)
Quarter: 2008Q3

REPORT INFORMATION
  Report Type: 
  Country: None (occurrence: None)
  Receive Date: 20080904
  Receipt Date: 20071011
  Transmission Date: 20090109
  Serious: No
  Sender: FDA-Public Use
  Company Number: US-BRISTOL-MYERS SQUIBB COMPANY-13938501

PATIENT
  Age: 67 Year
  Sex: Male
  Weight: 132 kg

DRUGS (1)
  1. DEFINITY [Suspect]
     Indication: ECHOCARDIOGRAM
     Dosage: TOTAL DOSE LESS THAN 1CC
     Dates: start: 20071009, end: 20071009

REACTIONS (1)
  - DIARRHOEA [None]
